FAERS Safety Report 6784464-4 (Version None)
Quarter: 2010Q2

REPORT INFORMATION
  Report Type: 
  Country: None (occurrence: None)
  Receive Date: 20100622
  Receipt Date: 20100611
  Transmission Date: 20101027
  Serious: Yes (Other)
  Sender: FDA-Public Use
  Company Number: US-JNJFOC-20100503345

PATIENT

DRUGS (2)
  1. CHILDREN'S MOTRIN COLD [Suspect]
     Route: 048
  2. CHILDREN'S MOTRIN COLD [Suspect]
     Indication: PYREXIA
     Route: 048

REACTIONS (3)
  - DRUG PRESCRIBING ERROR [None]
  - PRODUCT QUALITY ISSUE [None]
  - PYREXIA [None]
